FAERS Safety Report 17589037 (Version 5)
Quarter: 2021Q4

REPORT INFORMATION
  Report Type: Spontaneous
  Country: DE (occurrence: DE)
  Receive Date: 20200327
  Receipt Date: 20211215
  Transmission Date: 20220304
  Serious: Yes (Hospitalization, Other)
  Sender: FDA-Public Use
  Company Number: DE-TEVA-2020-DE-1213912

PATIENT
  Age: 7 Decade
  Sex: Male

DRUGS (16)
  1. VALSARTAN [Suspect]
     Active Substance: VALSARTAN
     Indication: Hypertension
     Route: 048
     Dates: start: 20170713
  2. HYDROCHLOROTHIAZIDE\VALSARTAN [Suspect]
     Active Substance: HYDROCHLOROTHIAZIDE\VALSARTAN
     Indication: Hypertension
     Dosage: 1 DF CONTAINS 160 MG VALSARTAN AND 12.5 MG HYDROCHLOROTHIAZIDE. VALSARTAN HENNING PLUS 160/12.5
     Dates: start: 20160913
  3. HYDROCHLOROTHIAZIDE\VALSARTAN [Suspect]
     Active Substance: HYDROCHLOROTHIAZIDE\VALSARTAN
     Indication: Hypertension
     Dosage: 1 DF CONTAINS 160 MG VALSARTAN AND 12.5 MG HYDROCHLOROTHIAZIDE, VALSARTAN 1A PLUS 160/12.5
     Dates: start: 20170214
  4. VALSARTAN [Suspect]
     Active Substance: VALSARTAN
     Indication: Hypertension
     Dates: start: 20180723
  5. VALSARTAN [Suspect]
     Active Substance: VALSARTAN
     Indication: Hypertension
     Dates: start: 20181214
  6. DULOXETINE HYDROCHLORIDE [Concomitant]
     Active Substance: DULOXETINE HYDROCHLORIDE
     Dates: end: 201704
  7. ELIQUIS [Concomitant]
     Active Substance: APIXABAN
     Dates: end: 201706
  8. Pantoprazol AL 40 mg [Concomitant]
  9. PANCRELIPASE [Concomitant]
     Active Substance: PANCRELIPASE
     Indication: Pancreatic failure
     Dates: start: 201709
  10. GABAPENTIN [Concomitant]
     Active Substance: GABAPENTIN
     Dosage: 600 MILLIGRAM DAILY;
  11. TAMSULOSIN [Concomitant]
     Active Substance: TAMSULOSIN
  12. ASS-ratio PROTECT 100 mg Tabletten [Concomitant]
     Dates: end: 201708
  13. Clopidogrel AAA 75 mg Filmtabletten [Concomitant]
     Dosage: 75 MILLIGRAM DAILY;
     Dates: start: 201708
  14. Foster 100/6 microg Axicorp [Concomitant]
  15. ALLOPURINOL [Concomitant]
     Active Substance: ALLOPURINOL
     Dosage: 1 DOSAGE FORMS DAILY;
  16. RANITIDINE [Concomitant]
     Active Substance: RANITIDINE
     Dosage: 300 MILLIGRAM DAILY;

REACTIONS (16)
  - Rectal cancer [Unknown]
  - Colon adenoma [Unknown]
  - Anogenital dysplasia [Unknown]
  - Swollen tongue [Unknown]
  - Swelling face [Unknown]
  - Urticaria [Unknown]
  - Vertigo [Unknown]
  - Muscle spasms [Unknown]
  - Headache [Unknown]
  - Cough [Unknown]
  - Abdominal pain [Unknown]
  - Nausea [Unknown]
  - Diarrhoea [Unknown]
  - Fatigue [Unknown]
  - Asthenia [Unknown]
  - Product impurity [Unknown]

NARRATIVE: CASE EVENT DATE: 20210701
